FAERS Safety Report 4462511-2 (Version None)
Quarter: 2004Q3

REPORT INFORMATION
  Report Type: 
  Country: None (occurrence: None)
  Receive Date: 20040924
  Receipt Date: 20040915
  Transmission Date: 20050211
  Serious: Yes (Hospitalization)
  Sender: FDA-Public Use
  Company Number: 2004SE05132

PATIENT
  Age: 74 Year
  Sex: Male

DRUGS (3)
  1. BLOPRESS [Suspect]
     Indication: HYPERTENSION
     Dosage: 8 MG PO
     Route: 048
     Dates: start: 20040423
  2. PLETAL [Suspect]
     Indication: CAROTID ARTERY STENOSIS
     Dates: start: 20040716
  3. NIFEDIPINE [Concomitant]

REACTIONS (3)
  - CAROTID ARTERY STENOSIS [None]
  - CONDITION AGGRAVATED [None]
  - INTERSTITIAL LUNG DISEASE [None]
